FAERS Safety Report 20209688 (Version 1)
Quarter: 2021Q4

REPORT INFORMATION
  Report Type: Spontaneous
  Country: CA (occurrence: CA)
  Receive Date: 20211221
  Receipt Date: 20211221
  Transmission Date: 20220303
  Serious: Yes (Disabling, Other)
  Sender: FDA-Public Use
  Company Number: CA-NOVOPROD-865468

PATIENT
  Age: 37 Year
  Sex: Female

DRUGS (1)
  1. OZEMPIC [Suspect]
     Active Substance: SEMAGLUTIDE
     Indication: Diabetes mellitus
     Dosage: 1 MG, QW
     Route: 058
     Dates: start: 20200602, end: 202010

REACTIONS (4)
  - Haematemesis [Unknown]
  - Impaired gastric emptying [Unknown]
  - Diarrhoea [Unknown]
  - Weight increased [Unknown]

NARRATIVE: CASE EVENT DATE: 20200901
